FAERS Safety Report 5695904-6 (Version None)
Quarter: 2008Q2

REPORT INFORMATION
  Report Type: 
  Country: None (occurrence: None)
  Receive Date: 20080407
  Receipt Date: 20080328
  Transmission Date: 20081010
  Serious: Yes (Other)
  Sender: FDA-Public Use
  Company Number: DE-GENENTECH-258480

PATIENT
  Sex: Female
  Weight: 66 kg

DRUGS (3)
  1. LUCENTIS [Suspect]
     Indication: MACULAR DEGENERATION
     Dosage: 4 DF, UNK
     Route: 031
     Dates: start: 20070301, end: 20070501
  2. BISOPROLOL FUMARATE [Concomitant]
     Indication: HYPERTENSION
     Dates: start: 20070330
  3. BISOPROLOL FUMARATE [Concomitant]
     Indication: EYE DISORDER

REACTIONS (1)
  - MYALGIA [None]
